FAERS Safety Report 8191348-6 (Version None)
Quarter: 2012Q1

REPORT INFORMATION
  Report Type: 
  Country: None (occurrence: None)
  Receive Date: 20120307
  Receipt Date: 20120224
  Transmission Date: 20120608
  Serious: Yes (Hospitalization)
  Sender: FDA-Public Use
  Company Number: US-ELI_LILLY_AND_COMPANY-US201202008498

PATIENT
  Age: 65 Year
  Sex: Male

DRUGS (4)
  1. HUMULIN R [Suspect]
  2. HUMULIN R [Suspect]
     Indication: DIABETES MELLITUS
     Dosage: 96 U, EACH MORNING
     Dates: start: 20120101
  3. HUMULIN R [Suspect]
     Dosage: 80 U, EACH EVENING
     Route: 065
     Dates: start: 20120101
  4. HUMALOG MIX 75/25 [Suspect]
     Indication: DIABETES MELLITUS
     Dosage: 350 U, QD
     Route: 065
     Dates: end: 20120101

REACTIONS (2)
  - WRONG DRUG ADMINISTERED [None]
  - SKIN ULCER [None]
